FAERS Safety Report 7241422-3 (Version None)
Quarter: 2011Q1

REPORT INFORMATION
  Report Type: 
  Country: None (occurrence: None)
  Receive Date: 20110124
  Receipt Date: 20110113
  Transmission Date: 20110831
  Serious: Yes (Hospitalization, Other)
  Sender: FDA-Public Use
  Company Number: RU-ASTRAZENECA-2010SE43207

PATIENT
  Age: 675 Month
  Sex: Male
  Weight: 96 kg

DRUGS (44)
  1. RIVAROXABAN [Suspect]
     Dosage: 2.5 MG OR 5 MG DAILY
     Route: 048
     Dates: end: 20100831
  2. ATORVASTATIN [Concomitant]
     Dosage: 2.5 MG OR 5 MG DAILY
     Route: 048
     Dates: start: 20100901, end: 20100905
  3. HYDROCHLOROTHIAZIDE [Concomitant]
  4. BISOPROLOL [Concomitant]
  5. GLUCOSE [Concomitant]
  6. MAGNESIUM SULFATE [Concomitant]
  7. BETAXOLOL [Concomitant]
  8. DILTIAZEM [Concomitant]
  9. ENALAPRIL [Concomitant]
  10. RIVAROXABAN [Suspect]
     Dosage: 2.5 MG OR 5 MG DAILY
     Route: 048
     Dates: start: 20100530
  11. ATORVASTATIN [Concomitant]
     Dosage: 2.5 MG OR 5 MG DAILY
     Route: 048
     Dates: start: 20100906, end: 20100907
  12. SPIRONOLACTONE [Concomitant]
     Dates: end: 20101221
  13. HEPARIN [Concomitant]
  14. MAGNESIUM ASPARTATE [Concomitant]
  15. METOPROLOL [Concomitant]
  16. AMIODARONE [Concomitant]
  17. ACETYLSALICYLIC ACID [Concomitant]
     Indication: ACUTE CORONARY SYNDROME
     Dates: end: 20100308
  18. ACETYLSALICYLIC ACID [Concomitant]
     Dates: start: 20100430
  19. ISOSORBIDE DINITRATE [Concomitant]
  20. ATORVASTATIN [Concomitant]
     Dosage: 2.5 MG OR 5 MG DAILY
     Route: 048
     Dates: end: 20100831
  21. PHENAZEPAM [Concomitant]
  22. HYLAK [Concomitant]
     Dates: start: 20101113, end: 20101113
  23. RIVAROXABAN [Suspect]
     Indication: ACUTE CORONARY SYNDROME
     Dosage: 2.5 MG OR 5 MG DAILY
     Route: 048
     Dates: start: 20100315, end: 20100315
  24. CLOPIDOGREL [Concomitant]
     Indication: ACUTE CORONARY SYNDROME
     Dates: end: 20100318
  25. POTASSIUM CHLORIDE [Concomitant]
  26. SODIUM CHLORIDE [Concomitant]
  27. FUROSEMIDE [Concomitant]
  28. CAPTOPRIL [Concomitant]
  29. METAMIZOLE SODIUM [Concomitant]
  30. OMEPRAZOLE [Suspect]
     Route: 048
  31. RIVAROXABAN [Suspect]
     Dosage: 2.5 MG OR 5 MG DAILY
     Route: 048
     Dates: start: 20100906, end: 20100907
  32. PERINDOPRIL [Concomitant]
  33. SIMVASTATIN [Concomitant]
  34. ACETYLSALICYLIC ACID [Concomitant]
     Dates: end: 20100429
  35. MORPHINE HYDROCHLORIDE [Concomitant]
  36. TRIMEPERIDINE [Concomitant]
  37. POTASSIUM [Concomitant]
  38. RIVAROXABAN [Suspect]
     Dosage: 2.5 MG OR 5 MG DAILY
     Route: 048
     Dates: start: 20100316, end: 20100512
  39. RIVAROXABAN [Suspect]
     Dosage: 2.5 MG OR 5 MG DAILY
     Route: 048
     Dates: start: 20100901, end: 20100905
  40. ATORVASTATIN [Concomitant]
     Dosage: 2.5 MG OR 5 MG DAILY
     Route: 048
     Dates: start: 20100315, end: 20100512
  41. ATORVASTATIN [Concomitant]
     Dosage: 2.5 MG OR 5 MG DAILY
     Route: 048
     Dates: start: 20100530
  42. LISINOPRIL [Concomitant]
  43. CLOPIDOGREL [Concomitant]
     Dates: start: 20100323, end: 20100331
  44. ISOSORBIDE MONONITRATE [Concomitant]
     Dates: start: 20100521

REACTIONS (4)
  - HEPATIC ENZYME INCREASED [None]
  - PANCREATIC NEOPLASM [None]
  - GASTRITIS EROSIVE [None]
  - JAUNDICE CHOLESTATIC [None]
